FAERS Safety Report 6144920-9 (Version None)
Quarter: 2009Q2

REPORT INFORMATION
  Report Type: 
  Country: None (occurrence: None)
  Receive Date: 20090402
  Receipt Date: 20090402
  Transmission Date: 20091009
  Serious: No
  Sender: FDA-Public Use
  Company Number: None

PATIENT
  Age: 78 Year
  Sex: Male
  Weight: 97 kg

DRUGS (3)
  1. OXYCODONE HCL [Suspect]
     Indication: BACK PAIN
     Dosage: 1 TAB BID PO
     Route: 048
     Dates: start: 20060913, end: 20060913
  2. OXYCODONE HCL [Suspect]
     Indication: OSTEOARTHRITIS
     Dosage: 1 TAB BID PO
     Route: 048
     Dates: start: 20060913, end: 20060913
  3. MORPHINE SULFATE [Suspect]
     Indication: ARTHRALGIA
     Dosage: 1 TAB QID PO
     Route: 048
     Dates: start: 19981028, end: 19981212

REACTIONS (3)
  - DRUG INEFFECTIVE [None]
  - NAUSEA [None]
  - VOMITING [None]
